FAERS Safety Report 6075899-6 (Version None)
Quarter: 2009Q1

REPORT INFORMATION
  Report Type: 
  Country: None (occurrence: None)
  Receive Date: 20090212
  Receipt Date: 20090205
  Transmission Date: 20090719
  Serious: Yes (Other)
  Sender: FDA-Public Use
  Company Number: US-ABBOTT-09P-163-0501713-00

PATIENT
  Age: 17 Year
  Sex: Male

DRUGS (6)
  1. VALPROIC ACID SYRUP [Suspect]
     Indication: CONVULSION
  2. VALPROIC ACID SYRUP [Suspect]
  3. VALPROIC ACID SYRUP [Suspect]
  4. VALPROIC ACID SYRUP [Suspect]
  5. VALPROATE SODIUM [Suspect]
     Indication: CONVULSION
     Route: 042
  6. VALPROATE SODIUM [Suspect]
     Route: 042

REACTIONS (2)
  - CONVULSION [None]
  - THERAPEUTIC RESPONSE DECREASED [None]
